FAERS Safety Report 9447871 (Version 1)
Quarter: 2013Q3

REPORT INFORMATION
  Report Type: Spontaneous
  Country: US (occurrence: US)
  Receive Date: 20130808
  Receipt Date: 20130808
  Transmission Date: 20140515
  Serious: Yes (Hospitalization)
  Sender: FDA-Public Use
  Company Number: US-BRISTOL-MYERS SQUIBB COMPANY-19156025

PATIENT
  Sex: Male

DRUGS (1)
  1. BYDUREON [Suspect]
     Route: 058
     Dates: start: 2013, end: 201307

REACTIONS (1)
  - Pancreatitis [Unknown]
